FAERS Safety Report 5905663-7 (Version None)
Quarter: 2008Q4

REPORT INFORMATION
  Report Type: 
  Country: None (occurrence: None)
  Receive Date: 20081002
  Receipt Date: 20080929
  Transmission Date: 20090506
  Serious: Yes (Hospitalization)
  Sender: FDA-Public Use
  Company Number: DE-WYE-G02250208

PATIENT
  Age: 35 Year
  Sex: Female

DRUGS (5)
  1. LORAZEPAM [Suspect]
     Dosage: 4 TABLETS (OVERDOSE AMOUNT 4 MG)
     Route: 048
     Dates: start: 20080927, end: 20080927
  2. THOMAPYRIN N [Suspect]
     Dosage: OVERDOSE AMOUNT 20 TABLETS
     Route: 048
     Dates: start: 20080927, end: 20080927
  3. IBUPROFEN [Suspect]
     Dosage: 10 TABLETS/CAPSULES (OVERDOSE AMOUNT 4000 MG)
     Route: 048
     Dates: start: 20080927, end: 20080927
  4. AMITRIPTYLINE HCL [Suspect]
     Dosage: 16 TABLETS (OVERDOSE AMOUNT 160 MG)
     Route: 048
     Dates: start: 20080927, end: 20080927
  5. AMOXICILLIN [Suspect]
     Dosage: UNKNOWN OVERDOSE AMOUNT
     Route: 048
     Dates: start: 20080927, end: 20080927

REACTIONS (2)
  - INTENTIONAL OVERDOSE [None]
  - SUICIDE ATTEMPT [None]
